FAERS Safety Report 4386354-3 (Version None)
Quarter: 2004Q2

REPORT INFORMATION
  Report Type: 
  Country: None (occurrence: None)
  Receive Date: 20040623
  Receipt Date: 20040610
  Transmission Date: 20050107
  Serious: Yes (Other)
  Sender: FDA-Public Use
  Company Number: 2004028724

PATIENT
  Age: 48 Year
  Sex: Male

DRUGS (4)
  1. VIAGRA [Suspect]
     Indication: ERECTILE DYSFUNCTION
     Dates: start: 20040501
  2. ETHANOL (ETHANOL) [Suspect]
     Indication: ILL-DEFINED DISORDER
  3. ACETYLSALICYLIC ACID SRT [Concomitant]
  4. VALCICLOVIR HYDROCHLORIDE (VALCICLOVIR HYDROCHLORIDE) [Concomitant]

REACTIONS (3)
  - ALCOHOL USE [None]
  - ANAPHYLACTIC REACTION [None]
  - ANGIONEUROTIC OEDEMA [None]
